FAERS Safety Report 5490701-9 (Version None)
Quarter: 2007Q4

REPORT INFORMATION
  Report Type: 
  Country: None (occurrence: None)
  Receive Date: 20071019
  Receipt Date: 20071012
  Transmission Date: 20080405
  Serious: Yes (Hospitalization)
  Sender: FDA-Public Use
  Company Number: AU-ELI_LILLY_AND_COMPANY-AU200710003383

PATIENT
  Age: 17 Year

DRUGS (3)
  1. ZYPREXA [Suspect]
     Dosage: 20 MG, UNK
     Route: 048
  2. ZYPREXA [Suspect]
     Dosage: 10 MG, 2/D
     Route: 048
     Dates: start: 20070501
  3. ZYPREXA [Suspect]
     Dosage: 2.5 MG, DAILY (1/D)
     Route: 048
     Dates: start: 20071001

REACTIONS (3)
  - BLOOD CHOLESTEROL INCREASED [None]
  - HOSPITALISATION [None]
  - OBESITY [None]
